FAERS Safety Report 10308085 (Version 1)
Quarter: 2014Q3

REPORT INFORMATION
  Report Type: Spontaneous
  Country: FR (occurrence: FR)
  Receive Date: 20140716
  Receipt Date: 20140716
  Transmission Date: 20150326
  Serious: Yes (Other)
  Sender: FDA-Public Use
  Company Number: FR-SA-2014SA091097

PATIENT
  Age: 51 Year
  Sex: Male

DRUGS (11)
  1. RIFINAH [Suspect]
     Active Substance: ISONIAZID\RIFAMPIN
     Indication: TUBERCULOSIS
     Dosage: STRENGTH: 300 MG/150 MG
     Route: 048
     Dates: start: 20140513, end: 20140603
  2. OXALIPLATIN. [Suspect]
     Active Substance: OXALIPLATIN
     Indication: COLON CANCER
     Route: 042
     Dates: start: 20140430, end: 20140515
  3. FLUOROURACILE [Suspect]
     Active Substance: FLUOROURACIL
     Indication: COLON CANCER
     Route: 042
     Dates: start: 20140430, end: 20140515
  4. SOLU-MEDROL [Concomitant]
     Active Substance: METHYLPREDNISOLONE SODIUM SUCCINATE
     Indication: CHEMOTHERAPY
  5. POLARAMINE [Concomitant]
     Active Substance: DEXCHLORPHENIRAMINE MALEATE
     Indication: CHEMOTHERAPY
  6. EMEND [Concomitant]
     Active Substance: APREPITANT
     Indication: CHEMOTHERAPY
  7. CALCIUM FOLINATE [Concomitant]
     Active Substance: LEUCOVORIN CALCIUM
     Indication: CHEMOTHERAPY
  8. VECTIBIX [Suspect]
     Active Substance: PANITUMUMAB
     Indication: COLON CANCER
     Dosage: STRENGTH: 20 MG/ML
     Route: 042
     Dates: start: 20140430, end: 20140515
  9. AMOXICILLIN. [Concomitant]
     Active Substance: AMOXICILLIN
     Route: 042
  10. GENTAMICIN [Concomitant]
     Active Substance: GENTAMICIN
  11. RIFAMPICIN [Concomitant]
     Active Substance: RIFAMPIN
     Dates: start: 20140505, end: 20140520

REACTIONS (4)
  - Thrombocytopenia [Not Recovered/Not Resolved]
  - Neutropenia [Recovered/Resolved]
  - Leukopenia [Recovered/Resolved]
  - Anaemia [Recovered/Resolved]

NARRATIVE: CASE EVENT DATE: 20140602
